FAERS Safety Report 21009585 (Version 1)
Quarter: 2022Q2

REPORT INFORMATION
  Report Type: Spontaneous
  Country: US (occurrence: None)
  Receive Date: 20220625
  Receipt Date: 20220625
  Transmission Date: 20220721
  Serious: Yes (Other)
  Sender: FDA-Public Use
  Company Number: None

PATIENT
  Age: 68 Year
  Sex: Female
  Weight: 54 kg

DRUGS (2)
  1. VENLAFAXINE [Suspect]
     Active Substance: VENLAFAXINE HYDROCHLORIDE
     Indication: Depression
     Dosage: 37.5MG DAILY ORAL?
     Route: 048
     Dates: start: 20181127, end: 20220621
  2. VENLAFAXINE [Suspect]
     Active Substance: VENLAFAXINE HYDROCHLORIDE
     Indication: Anxiety

REACTIONS (7)
  - Product substitution issue [None]
  - Withdrawal syndrome [None]
  - Nausea [None]
  - Anxiety [None]
  - Tremor [None]
  - Depression [None]
  - Symptom recurrence [None]

NARRATIVE: CASE EVENT DATE: 20220621
